FAERS Safety Report 4714124-2 (Version None)
Quarter: 2005Q3

REPORT INFORMATION
  Report Type: 
  Country: None (occurrence: None)
  Receive Date: 20050712
  Receipt Date: 20050627
  Transmission Date: 20060218
  Serious: Yes (Hospitalization)
  Sender: FDA-Public Use
  Company Number: FR_050606725

PATIENT
  Age: 82 Year
  Sex: Female
  Weight: 54 kg

DRUGS (5)
  1. FORTEO [Suspect]
     Indication: OSTEOPOROSIS
     Dosage: 20 UG DAY
     Dates: start: 20050309, end: 20050529
  2. SECTRAL [Concomitant]
  3. TAREG (VALSARTAN) [Concomitant]
  4. ASPEGIC 325 [Concomitant]
  5. FIXICAL (CALCIUM CARBONATE) [Concomitant]

REACTIONS (6)
  - BLOOD PRESSURE SYSTOLIC INCREASED [None]
  - CEREBRAL INFARCTION [None]
  - DISORIENTATION [None]
  - GLOBAL AMNESIA [None]
  - HEADACHE [None]
  - HYPONATRAEMIA [None]
